FAERS Safety Report 12234004 (Version 1)
Quarter: 2016Q2

REPORT INFORMATION
  Report Type: Spontaneous
  Country: US (occurrence: US)
  Receive Date: 20160404
  Receipt Date: 20160404
  Transmission Date: 20160815
  Serious: No
  Sender: FDA-Public Use
  Company Number: US-TEVA-647948USA

PATIENT
  Sex: Female

DRUGS (2)
  1. ESTRADIOL. [Suspect]
     Active Substance: ESTRADIOL
     Route: 065
  2. ENJUVIA [Suspect]
     Active Substance: ESTROGENS, CONJUGATED SYNTHETIC B
     Route: 065

REACTIONS (2)
  - Drug hypersensitivity [Unknown]
  - Malaise [Unknown]
